FAERS Safety Report 4689724-9 (Version None)
Quarter: 2005Q2

REPORT INFORMATION
  Report Type: 
  Country: None (occurrence: None)
  Receive Date: 20050608
  Receipt Date: 20050323
  Transmission Date: 20051028
  Serious: No
  Sender: FDA-Public Use
  Company Number: 2005-BP-04917BP

PATIENT
  Sex: Male

DRUGS (4)
  1. SPIRIVA [Suspect]
     Indication: CHRONIC OBSTRUCTIVE PULMONARY DISEASE
     Dosage: 18 MCG (18 MCG, QD), IH
     Route: 055
     Dates: start: 20050102
  2. SPIRIVA [Suspect]
     Indication: EMPHYSEMA
     Dosage: 18 MCG (18 MCG, QD), IH
     Route: 055
     Dates: start: 20050102
  3. PERCOCET [Suspect]
     Indication: PAIN
     Dosage: PO
     Route: 048
     Dates: start: 20041201, end: 20050117
  4. FE TAB (IRON) [Suspect]
     Indication: SURGERY
     Dosage: PO
     Route: 048
     Dates: start: 20041201, end: 20050117

REACTIONS (2)
  - CONSTIPATION [None]
  - DRY MOUTH [None]
